FAERS Safety Report 4322778-8 (Version None)
Quarter: 2004Q1

REPORT INFORMATION
  Report Type: 
  Country: None (occurrence: None)
  Receive Date: 20040324
  Receipt Date: 20040312
  Transmission Date: 20041129
  Serious: Yes (Hospitalization, Disabling)
  Sender: FDA-Public Use
  Company Number: JP-ROCHE-361421

PATIENT
  Age: 73 Year
  Sex: Male

DRUGS (8)
  1. NICARDIPINE HCL [Suspect]
     Indication: HYPERTENSION
     Route: 041
     Dates: start: 20020504, end: 20020510
  2. NITROGLYCERIN [Concomitant]
     Indication: HYPERTENSION
     Route: 041
     Dates: start: 20020504, end: 20020510
  3. NIFEDIPINE [Concomitant]
     Indication: HYPERTENSION
     Route: 048
     Dates: start: 20020509
  4. DOXAZOSIN MESYLATE [Concomitant]
     Indication: HYPERTENSION
     Route: 048
     Dates: start: 20020309
  5. FUROSEMIDE [Concomitant]
     Route: 048
     Dates: start: 20020515
  6. CARVEDILOL [Concomitant]
     Route: 048
     Dates: start: 20020515
  7. HEPARIN [Concomitant]
     Dates: start: 20020515
  8. ANTIBACTERIAL [Concomitant]
     Indication: PNEUMONIA
     Route: 041
     Dates: start: 20020303

REACTIONS (1)
  - ISCHAEMIC CEREBRAL INFARCTION [None]
